FAERS Safety Report 8819762 (Version 2)
Quarter: 2014Q3

REPORT INFORMATION
  Report Type: Report from Study
  Country: US (occurrence: US)
  Receive Date: 20121001
  Receipt Date: 20140806
  Transmission Date: 20150326
  Serious: Yes (Other)
  Sender: FDA-Public Use
  Company Number: US-ROCHE-1104053

PATIENT
  Sex: Female

DRUGS (10)
  1. ADRIAMYCIN [Concomitant]
     Active Substance: DOXORUBICIN HYDROCHLORIDE
  2. HERCEPTIN [Suspect]
     Active Substance: TRASTUZUMAB
     Indication: BREAST CANCER METASTATIC
     Route: 042
     Dates: start: 20080303
  3. HERCEPTIN [Suspect]
     Active Substance: TRASTUZUMAB
     Route: 042
     Dates: start: 20080325
  4. XELODA [Suspect]
     Active Substance: CAPECITABINE
     Indication: PRODUCT USED FOR UNKNOWN INDICATION
     Route: 065
  5. TYKERB [Concomitant]
     Active Substance: LAPATINIB DITOSYLATE
  6. TAXOL [Concomitant]
     Active Substance: PACLITAXEL
  7. PROGESTERONE. [Concomitant]
     Active Substance: PROGESTERONE
  8. HERCEPTIN [Suspect]
     Active Substance: TRASTUZUMAB
     Indication: BREAST CANCER
     Route: 042
     Dates: start: 20080204
  9. HERCEPTIN [Suspect]
     Active Substance: TRASTUZUMAB
     Indication: METASTASES TO LIVER
     Route: 042
     Dates: start: 20080211
  10. CYTOXAN [Concomitant]
     Active Substance: CYCLOPHOSPHAMIDE

REACTIONS (6)
  - Disease progression [Unknown]
  - Metastases to bone [Unknown]
  - Metastases to liver [Unknown]
  - Nausea [Unknown]
  - Vomiting [Unknown]
  - Metastases to central nervous system [Unknown]
